FAERS Safety Report 13372184 (Version 1)
Quarter: 2017Q1

REPORT INFORMATION
  Report Type: Spontaneous
  Country: US (occurrence: US)
  Receive Date: 20170327
  Receipt Date: 20170327
  Transmission Date: 20170429
  Serious: No
  Sender: FDA-Public Use
  Company Number: US-INTERPRAG-PM-OCA2016-00282

PATIENT

DRUGS (3)
  1. MODAFIL [Concomitant]
     Indication: FATIGUE
     Dosage: 50 MG, QD
  2. ACTIGALL [Concomitant]
     Active Substance: URSODIOL
     Dosage: 900 MG, QD
  3. OCALIVA [Suspect]
     Active Substance: OBETICHOLIC ACID
     Indication: BILIARY CIRRHOSIS PRIMARY
     Dosage: 5 MG, QD
     Route: 048
     Dates: start: 201611, end: 201612

REACTIONS (12)
  - Stress [Unknown]
  - Skin ulcer [Unknown]
  - Fatigue [Not Recovered/Not Resolved]
  - Pruritus [Not Recovered/Not Resolved]
  - Decreased appetite [Unknown]
  - Lymphadenopathy [Unknown]
  - Constipation [Unknown]
  - Myalgia [Not Recovered/Not Resolved]
  - Rash [Unknown]
  - Weight decreased [Unknown]
  - Insomnia [Unknown]
  - Drug ineffective [Unknown]

NARRATIVE: CASE EVENT DATE: 2016
